FAERS Safety Report 18894953 (Version 2)
Quarter: 2021Q3

REPORT INFORMATION
  Report Type: Spontaneous
  Country: US (occurrence: US)
  Receive Date: 20210216
  Receipt Date: 20210811
  Transmission Date: 20211014
  Serious: No
  Sender: FDA-Public Use
  Company Number: US-SA-2021SA048672

PATIENT
  Age: 80 Year
  Sex: Male

DRUGS (24)
  1. ACIDOPHILUS [Concomitant]
     Active Substance: LACTOBACILLUS ACIDOPHILUS
  2. ASPIRIN [ACETYLSALICYLIC ACID] [Concomitant]
     Active Substance: ASPIRIN
  3. GRAPESEED [Concomitant]
  4. VITAMIN C [Concomitant]
     Active Substance: ASCORBIC ACID
  5. DAILY MULTIVITAMIN [Concomitant]
     Active Substance: VITAMINS
  6. AUBAGIO [Suspect]
     Active Substance: TERIFLUNOMIDE
     Indication: MULTIPLE SCLEROSIS
     Dosage: 14 MG, QD
     Route: 048
     Dates: start: 20201101
  7. EVENING PRIMROSE OIL [OENOTHERA BIENNIS OIL] [Concomitant]
  8. VITAMIN B COMPLEX [Concomitant]
     Active Substance: CYANOCOBALAMIN\DEXPANTHENOL\NIACINAMIDE\PYRIDOXINE HYDROCHLORIDE\RIBOFLAVIN 5^-PHOSPHATE SODIUM\THIAMINE HYDROCHLORIDE\VITAMIN B COMPLEX
  9. GINKGO BILOBA [Concomitant]
     Active Substance: GINKGO
  10. MAGNESIUM [Concomitant]
     Active Substance: MAGNESIUM
  11. VITAMIN E [Concomitant]
     Active Substance: .ALPHA.-TOCOPHEROL
  12. LUTEIN [XANTOFYL] [Concomitant]
  13. GARLIC [ALLIUM SATIVUM] [Concomitant]
     Active Substance: GARLIC
  14. VITAMIN D3 [Concomitant]
     Active Substance: CHOLECALCIFEROL
  15. IRON [Concomitant]
     Active Substance: IRON
  16. ZINC. [Concomitant]
     Active Substance: ZINC
  17. SAW PALMETTO [SERENOA REPENS] [Concomitant]
     Active Substance: HERBALS\SAW PALMETTO
  18. ASTAXANTHIN [Concomitant]
     Active Substance: ASTAXANTHIN
  19. MELATONIN [Concomitant]
     Active Substance: MELATONIN
  20. SELENIUM [Concomitant]
     Active Substance: SELENIUM
  21. MILK THISTLE [SILYBUM MARIANUM] [Concomitant]
     Active Substance: DIETARY SUPPLEMENT\HERBALS\MILK THISTLE
  22. CYANOCOBALAMIN. [Concomitant]
     Active Substance: CYANOCOBALAMIN
  23. TURMERIC [CURCUMA LONGA] [Concomitant]
     Active Substance: HERBALS\TURMERIC
  24. GLUCOSAMINE CHONDROITIN [CHONDROITIN SULFATE;GLUCOSAMINE] [Concomitant]

REACTIONS (7)
  - Alopecia [Not Recovered/Not Resolved]
  - Diarrhoea [Unknown]
  - Facial pain [Unknown]
  - Dry eye [Recovered/Resolved]
  - Headache [Unknown]
  - Trigeminal neuralgia [Unknown]
  - Headache [Recovered/Resolved]
